FAERS Safety Report 12509951 (Version 1)
Quarter: 2016Q2

REPORT INFORMATION
  Report Type: Spontaneous
  Country: DK (occurrence: FR)
  Receive Date: 20160629
  Receipt Date: 20160629
  Transmission Date: 20160815
  Serious: Yes (Other)
  Sender: FDA-Public Use
  Company Number: FR-FRI-1000085652

PATIENT
  Age: 70 Year
  Sex: Male

DRUGS (4)
  1. OXYCODONE [Concomitant]
     Active Substance: OXYCODONE
     Dosage: 20 MG
     Route: 048
     Dates: start: 201512, end: 20160319
  2. CEFTAROLINE FOSAMIL [Suspect]
     Active Substance: CEFTAROLINE FOSAMIL
     Indication: INFECTION
     Dosage: 800 MG
     Route: 042
     Dates: start: 20160121, end: 20160316
  3. TIENAM [Concomitant]
     Active Substance: CILASTATIN SODIUM\IMIPENEM
     Indication: INFECTION
     Route: 042
     Dates: end: 20160304
  4. OXYNORMORO [Concomitant]
     Active Substance: OXYCODONE
     Dosage: 20 MEQ
     Route: 048
     Dates: start: 201512, end: 20160319

REACTIONS (9)
  - Thrombocytopenia [Unknown]
  - Purpura [Unknown]
  - Eosinophilia [Recovering/Resolving]
  - Toxic skin eruption [Unknown]
  - Hypersensitivity [Unknown]
  - Oedema peripheral [Unknown]
  - Pruritus [Recovered/Resolved]
  - Urticaria [Recovered/Resolved]
  - Erythema [Recovered/Resolved]

NARRATIVE: CASE EVENT DATE: 20160222
